FAERS Safety Report 23687237 (Version 2)
Quarter: 2024Q2

REPORT INFORMATION
  Report Type: Spontaneous
  Country: CA (occurrence: CA)
  Receive Date: 20240329
  Receipt Date: 20240504
  Transmission Date: 20240716
  Serious: Yes (Other)
  Sender: FDA-Public Use
  Company Number: CA-GREER Laboratories, Inc.-2154986

PATIENT
  Age: 35 Year
  Sex: Male

DRUGS (23)
  1. MIXTURE OF FOUR STANDARDIZED GRASSES [Suspect]
     Active Substance: AGROSTIS GIGANTEA POLLEN\DACTYLIS GLOMERATA POLLEN\PHLEUM PRATENSE POLLEN\POA PRATENSIS POLLEN
     Indication: Rhinitis allergic
     Route: 058
     Dates: start: 20230723, end: 20231123
  2. SHORT AND GIANT RAGWEED POLLEN MIX [Suspect]
     Active Substance: AMBROSIA ARTEMISIIFOLIA POLLEN\AMBROSIA TRIFIDA POLLEN
     Route: 058
     Dates: start: 20230726, end: 20231123
  3. SYMBICORT [Concomitant]
     Active Substance: BUDESONIDE\FORMOTEROL FUMARATE DIHYDRATE
  4. RAMIPRIL [Concomitant]
     Active Substance: RAMIPRIL
  5. BISOPROLOL. [Concomitant]
     Active Substance: BISOPROLOL FUMARATE
  6. JARDIANCE [Concomitant]
     Active Substance: EMPAGLIFLOZIN
  7. ROSUVASTATIN [Concomitant]
     Active Substance: ROSUVASTATIN
  8. EZETIMIBE [Concomitant]
     Active Substance: EZETIMIBE
  9. DEXILANT [Concomitant]
     Active Substance: DEXLANSOPRAZOLE
  10. ASPIRIN [Concomitant]
     Active Substance: ASPIRIN
  11. PINE POLLEN MIX [Suspect]
     Active Substance: PINUS ECHINATA POLLEN\PINUS STROBUS POLLEN\PINUS TAEDA POLLEN
     Route: 058
     Dates: start: 20230723, end: 20231123
  12. RUSSIAN THISTLE POLLEN [Suspect]
     Active Substance: SALSOLA KALI POLLEN
     Route: 058
     Dates: start: 20230723, end: 20231123
  13. YELLOW CURLY DOCK POLLEN [Suspect]
     Active Substance: RUMEX CRISPUS POLLEN
     Route: 058
     Dates: start: 20230723, end: 20231123
  14. ENGLISH PLANTAIN POLLEN [Suspect]
     Active Substance: PLANTAGO LANCEOLATA POLLEN
     Route: 058
     Dates: start: 20230723, end: 20231123
  15. COMMON MUGWORT POLLEN [Suspect]
     Active Substance: ARTEMISIA VULGARIS POLLEN
     Route: 058
     Dates: start: 20230723, end: 20231123
  16. WHITE POPLAR POLLEN [Suspect]
     Active Substance: POPULUS ALBA POLLEN
     Route: 058
     Dates: start: 20230723, end: 20231123
  17. RED MULBERRY POLLEN [Suspect]
     Active Substance: MORUS RUBRA POLLEN
     Route: 058
     Dates: start: 20230723, end: 20231123
  18. STANDARDIZED CAT HAIR [Suspect]
     Active Substance: FELIS CATUS HAIR
     Route: 058
     Dates: start: 20230723, end: 20231123
  19. STANDARDIZED MITE MIX [Suspect]
     Active Substance: DERMATOPHAGOIDES FARINAE\DERMATOPHAGOIDES PTERONYSSINUS
     Route: 058
     Dates: start: 20230723, end: 20231123
  20. ROCKY MOUNTAIN JUNIPER POLLEN [Suspect]
     Active Substance: JUNIPERUS SCOPULORUM POLLEN
     Route: 058
     Dates: start: 20230723, end: 20231123
  21. SHAGBARK HICKORY POLLEN [Suspect]
     Active Substance: CARYA OVATA POLLEN
     Route: 058
     Dates: start: 20230723, end: 20231123
  22. WHITE BIRCH POLLEN [Suspect]
     Active Substance: BETULA POPULIFOLIA POLLEN
     Route: 058
     Dates: start: 20230723, end: 20231123
  23. WHITE ASH POLLEN [Suspect]
     Active Substance: FRAXINUS AMERICANA POLLEN
     Route: 058
     Dates: start: 20230723, end: 20231123

REACTIONS (1)
  - Anaphylactic reaction [Recovered/Resolved]
